FAERS Safety Report 13562209 (Version 1)
Quarter: 2017Q2

REPORT INFORMATION
  Report Type: Spontaneous
  Country: ZA (occurrence: ZA)
  Receive Date: 20170519
  Receipt Date: 20170519
  Transmission Date: 20170830
  Serious: Yes (Other)
  Sender: FDA-Public Use
  Company Number: ZA-009507513-1705ZAF008801

PATIENT
  Age: 9 Year

DRUGS (1)
  1. MONTE-AIR [Suspect]
     Active Substance: MONTELUKAST SODIUM
     Dosage: UNK
     Dates: start: 2016

REACTIONS (1)
  - Osteochondrosis [Unknown]
